APPROVED DRUG PRODUCT: MEXILETINE HYDROCHLORIDE
Active Ingredient: MEXILETINE HYDROCHLORIDE
Strength: 200MG
Dosage Form/Route: CAPSULE;ORAL
Application: A215315 | Product #002 | TE Code: AB
Applicant: RISING PHARMA HOLDINGS INC
Approved: Aug 26, 2022 | RLD: No | RS: No | Type: RX